FAERS Safety Report 11935532 (Version 4)
Quarter: 2016Q1

REPORT INFORMATION
  Report Type: Spontaneous
  Country: US (occurrence: US)
  Receive Date: 20160121
  Receipt Date: 20160307
  Transmission Date: 20160526
  Serious: No
  Sender: FDA-Public Use
  Company Number: US-009507513-1601USA004573

PATIENT
  Sex: Male

DRUGS (1)
  1. DEXAMETHASONE. [Suspect]
     Active Substance: DEXAMETHASONE
     Indication: STEROID THERAPY
     Dosage: 1 MG/KG UP TO A MAXIMUN DOSE OF 10 MG
     Route: 042

REACTIONS (1)
  - Metabolic disorder [Recovered/Resolved]
